FAERS Safety Report 8270577-7 (Version None)
Quarter: 2012Q2

REPORT INFORMATION
  Report Type: 
  Country: None (occurrence: None)
  Receive Date: 20120410
  Receipt Date: 20120330
  Transmission Date: 20120825
  Serious: Yes (Other)
  Sender: FDA-Public Use
  Company Number: JP-BRISTOL-MYERS SQUIBB COMPANY-15910664

PATIENT
  Age: 65 Year
  Sex: Female

DRUGS (5)
  1. ETANERCEPT [Concomitant]
     Indication: RHEUMATOID ARTHRITIS
     Dates: start: 20100401, end: 20101201
  2. ALENDRONATE SODIUM [Concomitant]
  3. BUCILLAMINE [Concomitant]
     Indication: RHEUMATOID ARTHRITIS
  4. BACTRIM [Concomitant]
  5. ORENCIA [Suspect]
     Indication: RHEUMATOID ARTHRITIS
     Dosage: 25JAN11,7FEB11,21FEB11,1APR11,25APR11,23MAY11,20JUN11
     Route: 041
     Dates: start: 20110125, end: 20110620

REACTIONS (1)
  - INTERSTITIAL LUNG DISEASE [None]
